FAERS Safety Report 6831136-3 (Version None)
Quarter: 2010Q3

REPORT INFORMATION
  Report Type: 
  Country: None (occurrence: None)
  Receive Date: 20100712
  Receipt Date: 20100630
  Transmission Date: 20110219
  Serious: Yes (Other)
  Sender: FDA-Public Use
  Company Number: RU-BAYER-201030757GPV

PATIENT
  Sex: Female

DRUGS (3)
  1. BETAFERON [Suspect]
     Indication: MULTIPLE SCLEROSIS
     Route: 058
     Dates: start: 20050503, end: 20061011
  2. BETAFERON [Suspect]
     Route: 058
     Dates: end: 20070201
  3. BETAFERON [Suspect]
     Route: 058
     Dates: start: 20070301

REACTIONS (2)
  - AMENORRHOEA [None]
  - PREGNANCY [None]
